FAERS Safety Report 8006458-3 (Version None)
Quarter: 2011Q4

REPORT INFORMATION
  Report Type: 
  Country: None (occurrence: None)
  Receive Date: 20111226
  Receipt Date: 20111108
  Transmission Date: 20120403
  Serious: Yes (Hospitalization)
  Sender: FDA-Public Use
  Company Number: PHHY2011VE104913

PATIENT
  Sex: Female

DRUGS (6)
  1. VITAMIN C [Concomitant]
     Indication: URINARY TRACT INFECTION
     Dosage: UNK UKN, QD
  2. KETOPROFEN [Concomitant]
     Indication: PAIN
     Dosage: ONE PILL EACH 8 OR 12 HOURS
  3. CATAFLAM [Concomitant]
     Indication: ANTIINFLAMMATORY THERAPY
     Dosage: 1 TABLET, BID
  4. ZOLEDRONOC ACID [Suspect]
     Indication: OSTEOPOROSIS
     Dosage: YEARLY
     Route: 042
     Dates: start: 20100101
  5. CEFADROXIL [Concomitant]
     Dosage: 500 MG, EACH 8 HOURS
  6. GENURIN [Concomitant]
     Indication: URINARY TRACT INFECTION
     Dosage: UNK UKN, UNK

REACTIONS (3)
  - BLADDER PROLAPSE [None]
  - INCONTINENCE [None]
  - BLADDER DISORDER [None]
